FAERS Safety Report 7884021-2 (Version None)
Quarter: 2011Q4

REPORT INFORMATION
  Report Type: 
  Country: None (occurrence: None)
  Receive Date: 20111102
  Receipt Date: 20111028
  Transmission Date: 20120403
  Serious: Yes (Death)
  Sender: FDA-Public Use
  Company Number: PHHY2008NL37311

PATIENT
  Sex: Male

DRUGS (10)
  1. SANDOSTATIN LAR [Suspect]
     Dosage: 30 MG, ONCE PER 4 WEEKS
     Route: 030
     Dates: start: 20080924, end: 20080924
  2. SANDOSTATIN LAR [Suspect]
     Dosage: 30 MG ONCE PER 4 WEEKS
     Route: 030
     Dates: start: 20010101
  3. DOSTINEX [Concomitant]
     Dosage: 0.5 MG ONCE DAILY
  4. AMLODIPINE [Concomitant]
     Dosage: 5 MG ONCE DAILY
  5. TESTOSTERONE PHENYL PROPIONATE INJ [Concomitant]
     Dosage: 250 MG ONCE PER 3 WEEKS
  6. ZESTORETIC [Concomitant]
     Dosage: 20 MG/12.5 MG
  7. METFORMIN HCL [Concomitant]
     Dosage: 500 MG ONCE DAILY
  8. SIMVASTATIN [Concomitant]
     Dosage: 20 MG, UNK
  9. SANDOSTATIN LAR [Suspect]
     Indication: ACROMEGALY
     Dosage: 30 MG, ONCE PER 4 WEEKS
     Route: 030
     Dates: start: 20070109
  10. ASCAL [Concomitant]
     Dosage: 100 MG ONCE DAILY

REACTIONS (2)
  - BRADYCARDIA [None]
  - INFARCTION [None]
